FAERS Safety Report 21265208 (Version 8)
Quarter: 2025Q1

REPORT INFORMATION
  Report Type: Report from Study
  Country: RU (occurrence: RU)
  Receive Date: 20220829
  Receipt Date: 20250305
  Transmission Date: 20250409
  Serious: Yes (Death, Hospitalization, Other)
  Sender: NOVARTIS
  Company Number: RU-NOVARTISPH-NVSC2022RU192799

PATIENT
  Age: 67 Year
  Sex: Female

DRUGS (7)
  1. PIQRAY [Suspect]
     Active Substance: ALPELISIB
     Indication: Breast cancer metastatic
     Dosage: 250 MG, QD
     Route: 048
     Dates: start: 20220728, end: 20220801
  2. PIQRAY [Suspect]
     Active Substance: ALPELISIB
     Dosage: 200 MG, QD IN THE EVENING
     Route: 048
     Dates: start: 20220802, end: 20220805
  3. GLICLAZIDE [Concomitant]
     Active Substance: GLICLAZIDE
     Indication: Type 2 diabetes mellitus
     Dosage: 60 MG, QD
     Route: 048
     Dates: start: 2012
  4. GLICLAZIDE [Concomitant]
     Active Substance: GLICLAZIDE
     Route: 065
  5. METFORMIN [Concomitant]
     Active Substance: METFORMIN HYDROCHLORIDE
     Indication: Type 2 diabetes mellitus
     Dosage: 850 MG, BID
     Route: 048
     Dates: start: 2012, end: 20220811
  6. METFORMIN [Concomitant]
     Active Substance: METFORMIN HYDROCHLORIDE
     Dosage: 850- 1000, BID
     Route: 065
  7. Triplexan [Concomitant]
     Indication: Hypertension
     Dosage: 1.25 MG + 5 MG. QD
     Route: 048
     Dates: start: 2012

REACTIONS (21)
  - Malignant neoplasm progression [Fatal]
  - Cystitis [Recovered/Resolved]
  - Anaemia [Recovered/Resolved]
  - Hyperglycaemia [Recovered/Resolved]
  - Thrombocytopenia [Recovered/Resolved]
  - Diarrhoea [Recovered/Resolved]
  - Dry mouth [Unknown]
  - Hypoxia [Recovered/Resolved]
  - Back pain [Unknown]
  - Blood alkaline phosphatase increased [Unknown]
  - Anisocytosis [Unknown]
  - Frequent bowel movements [Unknown]
  - Breath sounds abnormal [Unknown]
  - Pollakiuria [Unknown]
  - Sinus tachycardia [Unknown]
  - QRS axis abnormal [Unknown]
  - Hypertrophy [Unknown]
  - Gastric dilatation [Unknown]
  - Supraventricular extrasystoles [Unknown]
  - Ventricular extrasystoles [Unknown]
  - Asthenia [Unknown]

NARRATIVE: CASE EVENT DATE: 20220730
